FAERS Safety Report 7211764-6 (Version None)
Quarter: 2011Q1

REPORT INFORMATION
  Report Type: 
  Country: None (occurrence: None)
  Receive Date: 20110105
  Receipt Date: 20101227
  Transmission Date: 20110831
  Serious: Yes (Hospitalization)
  Sender: FDA-Public Use
  Company Number: US-ABBOTT-10P-163-0690927-00

PATIENT
  Sex: Male
  Weight: 124.85 kg

DRUGS (8)
  1. METHOTREXATE [Concomitant]
     Indication: PSORIASIS
     Dates: start: 20070111
  2. CORTICOSTEROIDS, DERMATOLOGICAL PREPARATIONS [Concomitant]
     Indication: PSORIASIS
     Dates: start: 19710101
  3. HUMIRA [Suspect]
     Route: 058
     Dates: end: 20101202
  4. TENORMIN [Concomitant]
     Indication: HYPERTENSION
     Dates: start: 19890101
  5. COMMERCIAL HUMIRA [Concomitant]
     Indication: PSORIASIS
     Dates: start: 20091012
  6. ANSAID [Concomitant]
     Indication: JOINT STIFFNESS
     Dates: start: 19890101
  7. ANSAID [Concomitant]
     Indication: PAIN
  8. HUMIRA [Suspect]
     Indication: PSORIASIS
     Route: 058
     Dates: start: 20070901

REACTIONS (1)
  - PANCYTOPENIA [None]
